FAERS Safety Report 10028895 (Version 1)
Quarter: 2014Q1

REPORT INFORMATION
  Report Type: Spontaneous
  Country: SA (occurrence: SA)
  Receive Date: 20140321
  Receipt Date: 20140321
  Transmission Date: 20141002
  Serious: Yes (Hospitalization)
  Sender: FDA-Public Use
  Company Number: SA-MYLANLABS-2014S1005532

PATIENT
  Age: 4 Year
  Sex: Female

DRUGS (3)
  1. FENTANYL [Suspect]
     Indication: SEDATION
     Dosage: 6MCG/KG/HOUR
     Route: 041
  2. FENTANYL [Suspect]
     Indication: OFF LABEL USE
     Dosage: 6MCG/KG/HOUR
     Route: 041
  3. MIDAZOLAM [Suspect]
     Indication: SEDATION
     Dosage: 0.2MG/KG/H
     Route: 041

REACTIONS (3)
  - Drug withdrawal syndrome [Recovered/Resolved]
  - Strabismus [Recovered/Resolved]
  - Unresponsive to stimuli [Recovered/Resolved]
